FAERS Safety Report 4464760-6 (Version None)
Quarter: 2004Q4

REPORT INFORMATION
  Report Type: 
  Country: None (occurrence: None)
  Receive Date: 20041004
  Receipt Date: 20040727
  Transmission Date: 20050328
  Serious: Yes (Other)
  Sender: FDA-Public Use
  Company Number: 376410

PATIENT
  Sex: Female

DRUGS (2)
  1. COREG [Suspect]
     Indication: ILL-DEFINED DISORDER
     Route: 048
  2. MULTIPLE MEDICATIONS [Concomitant]

REACTIONS (2)
  - COLONIC HAEMORRHAGE [None]
  - PURPURA [None]
